FAERS Safety Report 6186408-5 (Version None)
Quarter: 2009Q2

REPORT INFORMATION
  Report Type: 
  Country: None (occurrence: None)
  Receive Date: 20090511
  Receipt Date: 20090504
  Transmission Date: 20091009
  Serious: Yes (Hospitalization)
  Sender: FDA-Public Use
  Company Number: DE-AMGEN-US345912

PATIENT
  Sex: Female

DRUGS (5)
  1. ENBREL [Suspect]
     Indication: RHEUMATOID ARTHRITIS
     Route: 058
     Dates: start: 20031125
  2. TRIAMCINOLONE [Suspect]
     Indication: RHEUMATOID ARTHRITIS
     Dosage: UNKNOWN
     Route: 065
  3. DECORTIN [Suspect]
     Indication: RHEUMATOID ARTHRITIS
     Dosage: 7.5 MG DAILY
     Route: 048
     Dates: end: 20040426
  4. DECORTIN [Suspect]
     Dosage: 20 MG DAILY
     Route: 048
     Dates: start: 20040427, end: 20040815
  5. DECORTIN [Suspect]
     Dosage: 10 MG DAILY
     Route: 048
     Dates: start: 20040816

REACTIONS (2)
  - CAESAREAN SECTION [None]
  - DRUG EXPOSURE DURING PREGNANCY [None]
